FAERS Safety Report 14125421 (Version 3)
Quarter: 2020Q3

REPORT INFORMATION
  Report Type: Report from Study
  Country: ES (occurrence: ES)
  Receive Date: 20171025
  Receipt Date: 20171208
  Transmission Date: 20201104
  Serious: Yes (Hospitalization)
  Sender: FDA-Public Use
  Company Number: ES-JNJFOC-20171016752

PATIENT
  Age: 58 Year
  Sex: Male

DRUGS (10)
  1. OMEPRAZOLE. [Concomitant]
     Active Substance: OMEPRAZOLE
     Indication: GASTROOESOPHAGEAL REFLUX DISEASE
     Route: 048
     Dates: start: 2011
  2. DARATUMUMAB [Suspect]
     Active Substance: DARATUMUMAB
     Indication: MYELODYSPLASTIC SYNDROME
     Route: 042
     Dates: start: 20170418, end: 20170627
  3. LEVOTHROID [Concomitant]
     Active Substance: LEVOTHYROXINE SODIUM
     Indication: AUTOIMMUNE HYPOTHYROIDISM
     Route: 048
     Dates: start: 2011
  4. URBASON [Concomitant]
     Active Substance: METHYLPREDNISOLONE
     Indication: POLYARTHRITIS
     Route: 042
     Dates: start: 20171005
  5. HIDROFEROL [Concomitant]
     Active Substance: CALCIFEDIOL
     Indication: POLYARTHRITIS
     Route: 050
     Dates: start: 201501
  6. DOLQUINE [Concomitant]
     Active Substance: HYDROXYCHLOROQUINE SULFATE
     Indication: POLYARTHRITIS
     Route: 048
     Dates: start: 2017
  7. HIBOR (BEMIPARIN SODIUM) [Concomitant]
     Active Substance: BEMIPARIN SODIUM
     Indication: THROMBOSIS
     Route: 058
     Dates: start: 20161129
  8. URBASON [Concomitant]
     Active Substance: METHYLPREDNISOLONE
     Indication: NEUTROPHILIC DERMATOSIS
     Route: 048
     Dates: start: 201507
  9. DARATUMUMAB [Suspect]
     Active Substance: DARATUMUMAB
     Route: 042
  10. DARBEPOETIN ALFA [Concomitant]
     Active Substance: DARBEPOETIN ALFA
     Indication: PRODUCT USED FOR UNKNOWN INDICATION
     Route: 058
     Dates: start: 20150123, end: 20150428

REACTIONS (1)
  - Autoimmune disorder [Recovered/Resolved]

NARRATIVE: CASE EVENT DATE: 20171004
